FAERS Safety Report 8337294 (Version 2)
Quarter: 2013Q1

REPORT INFORMATION
  Report Type: Spontaneous
  Country: FR (occurrence: FR)
  Receive Date: 20120113
  Receipt Date: 20130320
  Transmission Date: 20140127
  Serious: Yes (Hospitalization)
  Sender: FDA-Public Use
  Company Number: FR-ASTRAZENECA-2012SE01360

PATIENT
  Age: 62 Year
  Sex: Female
  Weight: 70 kg

DRUGS (5)
  1. AVLOCARDYL [Suspect]
     Route: 048
  2. CRESTOR [Suspect]
     Route: 048
     Dates: start: 20101109
  3. LEVOTHYROX [Suspect]
     Dosage: DAILY
     Route: 048
  4. MYFORTIC [Suspect]
     Route: 048
     Dates: start: 20070912
  5. RAPAMUNE [Suspect]
     Dosage: DAILY
     Route: 048
     Dates: start: 20090317, end: 20111118

REACTIONS (1)
  - Interstitial lung disease [Unknown]
